FAERS Safety Report 12459992 (Version 1)
Quarter: 2016Q2

REPORT INFORMATION
  Report Type: Spontaneous
  Country: US (occurrence: US)
  Receive Date: 20160613
  Receipt Date: 20160613
  Transmission Date: 20160815
  Serious: No
  Sender: FDA-Public Use
  Company Number: US-PFIZER INC-2016264412

PATIENT
  Sex: Female

DRUGS (1)
  1. CYTOTEC [Suspect]
     Active Substance: MISOPROSTOL
     Indication: BIOPSY CERVIX
     Dosage: 200 UG, (200MCG, TABLET, BY MOUTH, ONCE)
     Route: 048
     Dates: start: 201605, end: 201605

REACTIONS (1)
  - Drug ineffective for unapproved indication [Unknown]
